FAERS Safety Report 12336132 (Version 1)
Quarter: 2016Q2

REPORT INFORMATION
  Report Type: Spontaneous
  Country: US (occurrence: US)
  Receive Date: 20160505
  Receipt Date: 20160505
  Transmission Date: 20160815
  Serious: No
  Sender: FDA-Public Use
  Company Number: US-PFIZER INC-2016211021

PATIENT
  Sex: Female

DRUGS (21)
  1. ZOLOFT [Suspect]
     Active Substance: SERTRALINE HYDROCHLORIDE
     Dosage: UNK
  2. CLONAZEPAM. [Suspect]
     Active Substance: CLONAZEPAM
     Dosage: UNK
  3. MOTRIN [Suspect]
     Active Substance: IBUPROFEN
     Dosage: UNK
  4. TALWIN [Suspect]
     Active Substance: PENTAZOCINE LACTATE
     Dosage: UNK
  5. CECLOR [Suspect]
     Active Substance: CEFACLOR
     Dosage: UNK
  6. AMBIEN CR [Suspect]
     Active Substance: ZOLPIDEM TARTRATE
     Dosage: UNK
  7. BACTRIM DS [Suspect]
     Active Substance: SULFAMETHOXAZOLE\TRIMETHOPRIM
     Dosage: UNK
  8. OXYCODONE [Suspect]
     Active Substance: OXYCODONE
     Dosage: UNK
  9. PYRIDIUM [Suspect]
     Active Substance: PHENAZOPYRIDINE
     Dosage: UNK
  10. REMERON [Suspect]
     Active Substance: MIRTAZAPINE
     Dosage: UNK
  11. DARVOCET A500 [Suspect]
     Active Substance: ACETAMINOPHEN\PROPOXYPHENE NAPSYLATE
     Dosage: UNK
  12. METADATE ER [Suspect]
     Active Substance: METHYLPHENIDATE HYDROCHLORIDE
     Dosage: UNK
  13. NAPROXEN. [Suspect]
     Active Substance: NAPROXEN
     Dosage: UNK
  14. MIDRIN [Suspect]
     Active Substance: ACETAMINOPHEN\DICHLORALPHENAZONE\ISOMETHEPTENE
     Dosage: UNK
  15. RISPERDAL [Suspect]
     Active Substance: RISPERIDONE
     Dosage: UNK
  16. TRAZODONE [Suspect]
     Active Substance: TRAZODONE HYDROCHLORIDE
     Dosage: UNK
  17. TRILEPTAL [Suspect]
     Active Substance: OXCARBAZEPINE
     Dosage: UNK
  18. CELEXA [Suspect]
     Active Substance: CITALOPRAM HYDROBROMIDE
     Dosage: UNK
  19. DEPAKOTE [Suspect]
     Active Substance: DIVALPROEX SODIUM
     Dosage: UNK
  20. PROVIGIL [Suspect]
     Active Substance: MODAFINIL
     Dosage: UNK
  21. ULTRAM [Suspect]
     Active Substance: TRAMADOL HYDROCHLORIDE
     Dosage: UNK

REACTIONS (1)
  - Drug hypersensitivity [Unknown]
